FAERS Safety Report 4537781-2 (Version None)
Quarter: 2004Q4

REPORT INFORMATION
  Report Type: 
  Country: None (occurrence: None)
  Receive Date: 20041224
  Receipt Date: 20041217
  Transmission Date: 20050328
  Serious: Yes (Life-Threatening, Hospitalization, Disabling)
  Sender: FDA-Public Use
  Company Number: US-MERCK-0412USA02204

PATIENT
  Age: 91 Year
  Sex: Female

DRUGS (11)
  1. VIOXX [Suspect]
     Indication: ARTHRITIS
     Route: 048
     Dates: end: 20040927
  2. NITROFURANTOIN [Concomitant]
     Route: 065
  3. HYDROCHLOROTHIAZIDE [Concomitant]
     Route: 065
  4. CIPROFLOXACIN HYDROCHLORIDE [Concomitant]
     Route: 065
  5. ASPIRIN [Concomitant]
     Route: 065
  6. VITAMINS (UNSPECIFIED) [Concomitant]
     Route: 065
  7. PRILOSEC [Concomitant]
     Route: 065
  8. FLUOXETINE [Concomitant]
     Route: 065
  9. SYNTHROID [Concomitant]
     Route: 065
  10. DOCUSATE SODIUM [Concomitant]
     Route: 065
  11. OMEPRAZOLE [Concomitant]
     Route: 065

REACTIONS (1)
  - CEREBROVASCULAR ACCIDENT [None]
